FAERS Safety Report 4860291-X (Version None)
Quarter: 2005Q4

REPORT INFORMATION
  Report Type: 
  Country: None (occurrence: None)
  Receive Date: 20051215
  Receipt Date: 20051201
  Transmission Date: 20060501
  Serious: Yes (Other)
  Sender: FDA-Public Use
  Company Number: 8013661

PATIENT
  Age: 18 Year
  Sex: Male

DRUGS (2)
  1. KEPPRA [Suspect]
     Indication: CONVULSION
     Dosage: PO
     Route: 048
     Dates: start: 20051123
  2. PHENOBARBITAL [Concomitant]

REACTIONS (8)
  - ASTHENIA [None]
  - COMMUNICATION DISORDER [None]
  - CONVULSION [None]
  - DYSPNOEA [None]
  - FATIGUE [None]
  - MOBILITY DECREASED [None]
  - MUSCLE TWITCHING [None]
  - SOMNOLENCE [None]
